FAERS Safety Report 23655543 (Version 1)
Quarter: 2024Q1

REPORT INFORMATION
  Report Type: Report from Study
  Country: US (occurrence: US)
  Receive Date: 20240321
  Receipt Date: 20240321
  Transmission Date: 20240409
  Serious: Yes (Other)
  Sender: FDA-Public Use
  Company Number: US-ABBVIE-4294356

PATIENT
  Age: 69 Year
  Sex: Male

DRUGS (9)
  1. RINVOQ [Suspect]
     Active Substance: UPADACITINIB
     Indication: Dermatitis atopic
     Route: 048
     Dates: start: 20230101
  2. RINVOQ [Suspect]
     Active Substance: UPADACITINIB
     Indication: Dermatitis atopic
     Route: 048
  3. RINVOQ [Suspect]
     Active Substance: UPADACITINIB
     Indication: Dermatitis atopic
     Dosage: LAST ADMINISTRATION DOSE DATE: DEC 2022
     Route: 048
     Dates: start: 20221230
  4. RINVOQ [Suspect]
     Active Substance: UPADACITINIB
     Indication: Dermatitis atopic
     Route: 048
     Dates: start: 20221221, end: 20221221
  5. RINVOQ [Suspect]
     Active Substance: UPADACITINIB
     Indication: Dermatitis atopic
     Route: 048
  6. RINVOQ [Suspect]
     Active Substance: UPADACITINIB
     Indication: Dermatitis atopic
     Route: 048
     Dates: start: 20221220, end: 20221220
  7. RINVOQ [Suspect]
     Active Substance: UPADACITINIB
     Indication: Dermatitis atopic
     Dosage: LAST ADMINISTRATION DOSE DATE: DEC 2022
     Route: 048
     Dates: start: 20221221
  8. OZEMPIC [Suspect]
     Active Substance: SEMAGLUTIDE
     Indication: Glucose tolerance impaired
     Route: 065
     Dates: start: 2023
  9. METROGEL [Concomitant]
     Active Substance: METRONIDAZOLE
     Indication: Product used for unknown indication

REACTIONS (19)
  - Scrotal disorder [Recovering/Resolving]
  - Headache [Unknown]
  - Acne [Not Recovered/Not Resolved]
  - Creatinine renal clearance increased [Not Recovered/Not Resolved]
  - Renal function test abnormal [Unknown]
  - Oral herpes [Unknown]
  - Chronic kidney disease [Unknown]
  - Drug interaction [Unknown]
  - Nephropathy [Not Recovered/Not Resolved]
  - Blood glucose decreased [Unknown]
  - Diarrhoea [Unknown]
  - Dermatitis atopic [Not Recovered/Not Resolved]
  - Gastrointestinal pain [Unknown]
  - Renal disorder [Unknown]
  - Abdominal discomfort [Unknown]
  - Rash [Not Recovered/Not Resolved]
  - Constipation [Unknown]
  - Osteoarthritis [Unknown]
  - Abdominal pain upper [Unknown]

NARRATIVE: CASE EVENT DATE: 20220304
